FAERS Safety Report 9174973 (Version 1)
Quarter: 2013Q1

REPORT INFORMATION
  Report Type: Spontaneous
  Country: US (occurrence: US)
  Receive Date: 20130320
  Receipt Date: 20130320
  Transmission Date: 20140127
  Serious: No
  Sender: FDA-Public Use
  Company Number: US-TARO-2013P1001719

PATIENT
  Age: 86 Year
  Sex: Female
  Weight: 48.99 kg

DRUGS (8)
  1. FLUOROURACIL [Suspect]
     Route: 061
     Dates: start: 20120919, end: 20121024
  2. FLUOROURACIL [Suspect]
     Indication: ACTINIC KERATOSIS
     Route: 061
     Dates: start: 20120919, end: 20121024
  3. SYNTHROID [Concomitant]
     Route: 048
  4. LEXAPRO [Concomitant]
     Route: 048
  5. FOSAMAX [Concomitant]
  6. HYDROCODONE/ACETAMINOPHEN [Concomitant]
  7. DULCOLAX [Concomitant]
  8. CITRACAL [Concomitant]

REACTIONS (3)
  - Application site swelling [Not Recovered/Not Resolved]
  - Skin tightness [Not Recovered/Not Resolved]
  - Inflammation [Not Recovered/Not Resolved]
